FAERS Safety Report 23247322 (Version 1)
Quarter: 2023Q4

REPORT INFORMATION
  Report Type: Report from Study
  Country: US (occurrence: US)
  Receive Date: 20231130
  Receipt Date: 20231130
  Transmission Date: 20240110
  Serious: Yes (Hospitalization)
  Sender: FDA-Public Use
  Company Number: US-BAYER-2023A169759

PATIENT
  Age: 72 Year
  Sex: Male
  Weight: 89.796 kg

DRUGS (12)
  1. ADEMPAS [Suspect]
     Active Substance: RIOCIGUAT
     Indication: Pulmonary arterial hypertension
     Dosage: UNK
     Dates: start: 20180411
  2. ADEMPAS [Suspect]
     Active Substance: RIOCIGUAT
     Indication: Pulmonary arterial hypertension
     Dosage: 2.5 MG, TID
     Route: 048
  3. OMEPRAZOLE [Concomitant]
     Active Substance: OMEPRAZOLE
  4. OPSUMIT [Concomitant]
     Active Substance: MACITENTAN
  5. TRELEGY ELLIPTA [Concomitant]
     Active Substance: FLUTICASONE FUROATE\UMECLIDINIUM BROMIDE\VILANTEROL TRIFENATATE
  6. CALCIUM\CHOLECALCIFEROL [Concomitant]
     Active Substance: CALCIUM\CHOLECALCIFEROL
  7. ELIQUIS [Concomitant]
     Active Substance: APIXABAN
  8. VITAMINS NOS [Concomitant]
     Active Substance: VITAMINS
  9. CRESTOR [Concomitant]
     Active Substance: ROSUVASTATIN CALCIUM
  10. OXYGEN [Concomitant]
     Active Substance: OXYGEN
  11. IRON [Concomitant]
     Active Substance: IRON
  12. NIACIN [Concomitant]
     Active Substance: NIACIN

REACTIONS (1)
  - Pulmonary thrombosis [None]
